FAERS Safety Report 18619075 (Version 1)
Quarter: 2020Q4

REPORT INFORMATION
  Report Type: Spontaneous
  Country: IT (occurrence: IT)
  Receive Date: 20201215
  Receipt Date: 20201215
  Transmission Date: 20210114
  Serious: Yes (Hospitalization)
  Sender: FDA-Public Use
  Company Number: IT-JNJFOC-2004008075

PATIENT
  Age: 26 Year
  Sex: Male

DRUGS (3)
  1. ZYRTEC [Suspect]
     Active Substance: CETIRIZINE HYDROCHLORIDE
     Route: 048
  2. ZYRTEC [Suspect]
     Active Substance: CETIRIZINE HYDROCHLORIDE
     Dosage: AS NEEDED; AS REQUIRED
     Route: 048
     Dates: start: 1995, end: 200303
  3. ZYRTEC [Suspect]
     Active Substance: CETIRIZINE HYDROCHLORIDE
     Indication: SEASONAL ALLERGY
     Dosage: DAILY DOSE QTY: 10 MG
     Route: 048
     Dates: start: 1999, end: 200303

REACTIONS (2)
  - Drug-induced liver injury [Recovering/Resolving]
  - Autoantibody positive [Not Recovered/Not Resolved]

NARRATIVE: CASE EVENT DATE: 200303
